FAERS Safety Report 6079562-7 (Version None)
Quarter: 2009Q1

REPORT INFORMATION
  Report Type: 
  Country: None (occurrence: None)
  Receive Date: 20090217
  Receipt Date: 20090216
  Transmission Date: 20090719
  Serious: Yes (Death, Other)
  Sender: FDA-Public Use
  Company Number: PHEH2007US05991

PATIENT
  Sex: Male

DRUGS (3)
  1. ZOMETA [Suspect]
     Dosage: 4MG
     Dates: start: 20030201, end: 20051201
  2. FEMARA [Concomitant]
     Dosage: 2.5MG
     Dates: start: 20030123
  3. FASLODEX [Concomitant]
     Dosage: UNK
     Dates: start: 20040101

REACTIONS (12)
  - ANAEMIA [None]
  - ANXIETY [None]
  - ATRIAL FIBRILLATION [None]
  - BACK PAIN [None]
  - BONE DISORDER [None]
  - DEATH [None]
  - DECUBITUS ULCER [None]
  - HYPERTENSION [None]
  - INJURY [None]
  - OSTEONECROSIS [None]
  - PAIN [None]
  - PERIODONTITIS [None]
